FAERS Safety Report 4827271-1 (Version None)
Quarter: 2005Q4

REPORT INFORMATION
  Report Type: 
  Country: None (occurrence: None)
  Receive Date: 20051014
  Receipt Date: 20050617
  Transmission Date: 20060501
  Serious: No
  Sender: FDA-Public Use
  Company Number: 2005SP001483

PATIENT
  Age: 56 Year
  Sex: Male
  Weight: 70.3075 kg

DRUGS (6)
  1. LUNESTA [Suspect]
     Indication: INSOMNIA
     Dosage: 1 MG; ORAL; SEE IMAGE
     Route: 048
     Dates: start: 20050501, end: 20050101
  2. LUNESTA [Suspect]
     Indication: INSOMNIA
     Dosage: 1 MG; ORAL; SEE IMAGE
     Route: 048
     Dates: start: 20050101, end: 20050601
  3. LUNESTA [Suspect]
     Indication: INSOMNIA
     Dosage: 1 MG; ORAL; SEE IMAGE
     Route: 048
     Dates: start: 20050601
  4. SINEMET [Concomitant]
  5. SYNTHROID [Concomitant]
  6. PAXIL [Concomitant]

REACTIONS (2)
  - PARAESTHESIA [None]
  - SOMNOLENCE [None]
